FAERS Safety Report 5901565-0 (Version None)
Quarter: 2008Q3

REPORT INFORMATION
  Report Type: 
  Country: None (occurrence: None)
  Receive Date: 20080925
  Receipt Date: 20080915
  Transmission Date: 20090109
  Serious: Yes (Hospitalization)
  Sender: FDA-Public Use
  Company Number: 2008AL010517

PATIENT
  Age: 47 Year
  Sex: Male

DRUGS (8)
  1. CARBAMAZEPINE [Suspect]
     Dosage: PO
     Route: 048
     Dates: start: 20050107
  2. CHLORPROMAZINE [Concomitant]
  3. HYDROCHLORIDE [Concomitant]
  4. LEVOMEPROMAZINE [Concomitant]
  5. BIPERIDEN HYDROCHLORIDE TAB [Concomitant]
  6. NITRAZEPAM [Concomitant]
  7. BROMAZEPAM [Concomitant]
  8. CLONAZEPAM [Concomitant]

REACTIONS (9)
  - ALANINE AMINOTRANSFERASE INCREASED [None]
  - ASPARTATE AMINOTRANSFERASE INCREASED [None]
  - BLOOD LACTATE DEHYDROGENASE INCREASED [None]
  - DRUG RASH WITH EOSINOPHILIA AND SYSTEMIC SYMPTOMS [None]
  - GAMMA-GLUTAMYLTRANSFERASE INCREASED [None]
  - HUMAN HERPESVIRUS 6 INFECTION [None]
  - HYPOGAMMAGLOBULINAEMIA [None]
  - LYMPHADENOPATHY [None]
  - LYMPHOCYTE STIMULATION TEST POSITIVE [None]
